FAERS Safety Report 14240964 (Version 1)
Quarter: 2017Q4

REPORT INFORMATION
  Report Type: Spontaneous
  Country: US (occurrence: US)
  Receive Date: 20171130
  Receipt Date: 20171130
  Transmission Date: 20180321
  Serious: Yes (Hospitalization)
  Sender: FDA-Public Use
  Company Number: US-ACTELION-A-NJ2017-163405

PATIENT
  Age: 56 Year
  Sex: Male

DRUGS (13)
  1. METFORMIN [Concomitant]
     Active Substance: METFORMIN HYDROCHLORIDE
  2. ELIQUIS [Concomitant]
     Active Substance: APIXABAN
  3. OPSUMIT [Suspect]
     Active Substance: MACITENTAN
     Indication: PULMONARY ARTERIAL HYPERTENSION
     Dosage: 10 MG, QD
     Route: 048
     Dates: start: 201711
  4. POTASSIUM [Concomitant]
     Active Substance: POTASSIUM
  5. ALBUTEROL. [Concomitant]
     Active Substance: ALBUTEROL
  6. SILDENAFIL. [Concomitant]
     Active Substance: SILDENAFIL
  7. NOVOLOG [Concomitant]
     Active Substance: INSULIN ASPART
  8. SIMVASTATIN. [Concomitant]
     Active Substance: SIMVASTATIN
  9. SPIRONOLACTONE. [Concomitant]
     Active Substance: SPIRONOLACTONE
  10. DILTIAZEM. [Concomitant]
     Active Substance: DILTIAZEM
  11. PREDNISOLONE. [Concomitant]
     Active Substance: PREDNISOLONE
  12. COLACE [Concomitant]
     Active Substance: DOCUSATE SODIUM
  13. LANTUS [Concomitant]
     Active Substance: INSULIN GLARGINE

REACTIONS (1)
  - Pneumonia [Recovered/Resolved]

NARRATIVE: CASE EVENT DATE: 201711
